FAERS Safety Report 8489977-5 (Version None)
Quarter: 2012Q2

REPORT INFORMATION
  Report Type: 
  Country: None (occurrence: None)
  Receive Date: 20120626
  Receipt Date: 20120611
  Transmission Date: 20120825
  Serious: Yes (Hospitalization, Disabling, Other)
  Sender: FDA-Public Use
  Company Number: 2011MA007912

PATIENT
  Sex: Female
  Weight: 63.5036 kg

DRUGS (25)
  1. QUETIAPINE [Concomitant]
  2. STEROIDS [Concomitant]
  3. ABILIFY [Concomitant]
  4. RISPERIDONE [Concomitant]
  5. CLONIDINE [Concomitant]
  6. TENORMIN [Concomitant]
  7. BUSPAR [Concomitant]
  8. METOCLOPRAMIDE [Suspect]
     Indication: PRODUCT USED FOR UNKNOWN INDICATION
     Dates: start: 20080901
  9. SLEEP MEDICATIONS [Concomitant]
  10. PAXIL [Concomitant]
  11. CELEXA [Concomitant]
  12. VERAPAMIL [Concomitant]
  13. PLAVIX [Concomitant]
  14. ATIVAN [Concomitant]
  15. THEOPHYLLINE [Concomitant]
  16. LOTENSIN [Concomitant]
  17. ZOLOFT [Concomitant]
  18. SEREVENT [Concomitant]
  19. WELLBUTRIN [Concomitant]
  20. AZMACORT [Concomitant]
  21. ATROVENT [Concomitant]
  22. FLOVENT [Concomitant]
  23. OLANZAPINE [Concomitant]
  24. BENADRYL [Concomitant]
  25. DIOVAN [Concomitant]

REACTIONS (12)
  - MOVEMENT DISORDER [None]
  - HYPOAESTHESIA [None]
  - MUSCULOSKELETAL DISORDER [None]
  - MENTAL DISORDER [None]
  - EXTRAPYRAMIDAL DISORDER [None]
  - TREMOR [None]
  - ECONOMIC PROBLEM [None]
  - GOITRE [None]
  - DEPRESSION [None]
  - DYSKINESIA [None]
  - THYROID NEOPLASM [None]
  - CARDIAC DISORDER [None]
